FAERS Safety Report 7676907-9 (Version None)
Quarter: 2011Q3

REPORT INFORMATION
  Report Type: 
  Country: None (occurrence: None)
  Receive Date: 20110811
  Receipt Date: 20110802
  Transmission Date: 20111222
  Serious: Yes (Other)
  Sender: FDA-Public Use
  Company Number: PHEH2011US00575

PATIENT
  Sex: Female
  Weight: 90.703 kg

DRUGS (19)
  1. KLOR-CON [Concomitant]
  2. DIOVAN [Concomitant]
  3. CYCLOBENZAPRINE [Concomitant]
  4. CLONIDINE [Concomitant]
  5. CELEBREX [Concomitant]
  6. REMERON [Concomitant]
  7. VESICARE [Concomitant]
  8. JANUVIA [Concomitant]
  9. PANTOPRAZOLE [Concomitant]
  10. EXJADE [Suspect]
     Indication: HAEMATOPOIETIC NEOPLASM
     Dosage: 500 MG, TID
     Route: 048
     Dates: start: 20100609
  11. EXJADE [Suspect]
     Indication: SERUM FERRITIN INCREASED
  12. DIURETICS [Concomitant]
  13. ALTACE [Concomitant]
  14. LEVOXYL [Concomitant]
  15. ALLEGRA [Concomitant]
  16. STARLIX [Concomitant]
  17. ATENOLOL [Concomitant]
  18. TRIAMTERENE AND HYDROCHLOROTHIAZID [Concomitant]
  19. TYLENOL-500 [Concomitant]

REACTIONS (3)
  - RENAL FAILURE [None]
  - HYPOTENSION [None]
  - HAEMOGLOBIN DECREASED [None]
